FAERS Safety Report 20927790 (Version 1)
Quarter: 2022Q2

REPORT INFORMATION
  Report Type: Spontaneous
  Country: US (occurrence: US)
  Receive Date: 20220607
  Receipt Date: 20220607
  Transmission Date: 20220721
  Serious: No
  Sender: FDA-Public Use
  Company Number: US-PERRIGO-21US031984

PATIENT
  Age: 65 Year
  Sex: Female
  Weight: 74.83 kg

DRUGS (3)
  1. MINOXIDIL [Suspect]
     Active Substance: MINOXIDIL
     Indication: Alopecia
     Dosage: 1/2 CAPFUL, QD
     Route: 061
     Dates: start: 20211109, end: 20211203
  2. LOSARTAN [Concomitant]
     Active Substance: LOSARTAN
     Indication: Hypertension
     Dosage: 50 MG
     Route: 065
     Dates: start: 2019
  3. LOVASTATIN [Concomitant]
     Active Substance: LOVASTATIN
     Indication: Hyperlipidaemia
     Dosage: 20 MG
     Route: 065
     Dates: start: 20210101

REACTIONS (6)
  - Application site hypersensitivity [Not Recovered/Not Resolved]
  - Application site warmth [Recovering/Resolving]
  - Growth of eyelashes [Not Recovered/Not Resolved]
  - Application site erythema [Not Recovered/Not Resolved]
  - Application site irritation [Not Recovered/Not Resolved]
  - Accidental exposure to product [Recovered/Resolved]

NARRATIVE: CASE EVENT DATE: 20211101
